FAERS Safety Report 5259251-9 (Version None)
Quarter: 2007Q1

REPORT INFORMATION
  Report Type: 
  Country: None (occurrence: None)
  Receive Date: 20070308
  Receipt Date: 20070226
  Transmission Date: 20070707
  Serious: Yes (Other)
  Sender: FDA-Public Use
  Company Number: US-PFIZER INC-2007016121

PATIENT
  Sex: Male
  Weight: 113.4 kg

DRUGS (9)
  1. CHANTIX [Suspect]
     Indication: SMOKING CESSATION THERAPY
     Dates: start: 20060101, end: 20070101
  2. SIMVASTATIN [Concomitant]
  3. TERAZOSIN HCL [Concomitant]
  4. DIVALPROEX SODIUM [Concomitant]
     Indication: BIPOLAR DISORDER
  5. VENLAFAXINE HCL [Concomitant]
     Indication: BIPOLAR DISORDER
  6. SERTRALINE [Concomitant]
     Indication: AFFECTIVE DISORDER
  7. LOSARTAN POSTASSIUM [Concomitant]
     Indication: BLOOD PRESSURE
  8. PLAVIX [Concomitant]
     Indication: THROMBOSIS
  9. FUROSEMIDE [Concomitant]

REACTIONS (8)
  - ADRENAL DISORDER [None]
  - CONSTIPATION [None]
  - CYST [None]
  - FLATULENCE [None]
  - MEMORY IMPAIRMENT [None]
  - NEOPLASM MALIGNANT [None]
  - PROSTATE EXAMINATION ABNORMAL [None]
  - RENAL DISORDER [None]
